FAERS Safety Report 16790979 (Version 2)
Quarter: 2019Q3

REPORT INFORMATION
  Report Type: Spontaneous
  Country: US (occurrence: US)
  Receive Date: 20190910
  Receipt Date: 20190917
  Transmission Date: 20191005
  Serious: Yes (Life-Threatening, Hospitalization)
  Sender: FDA-Public Use
  Company Number: US-TEVA-2019-US-1105420

PATIENT
  Age: 22 Year
  Sex: Female

DRUGS (5)
  1. LORAZEPAM. [Concomitant]
     Active Substance: LORAZEPAM
     Indication: GENERALISED TONIC-CLONIC SEIZURE
     Route: 042
  2. EPINEPHRINE. [Concomitant]
     Active Substance: EPINEPHRINE
     Indication: PULSELESS ELECTRICAL ACTIVITY
     Route: 065
  3. BUPROPION EXTENDED RELEASE XL [Suspect]
     Active Substance: BUPROPION
     Indication: INTENTIONAL OVERDOSE
     Dosage: NUMBER OF SEPARATE DOSAGES: 1
     Route: 048
  4. SODIUM BICARBONATE. [Concomitant]
     Active Substance: SODIUM BICARBONATE
     Indication: PULSELESS ELECTRICAL ACTIVITY
     Route: 065
  5. MAGNESIUM [Concomitant]
     Active Substance: MAGNESIUM
     Indication: PULSELESS ELECTRICAL ACTIVITY
     Route: 065

REACTIONS (9)
  - Torsade de pointes [Recovering/Resolving]
  - Ventricular extrasystoles [Recovering/Resolving]
  - Generalised tonic-clonic seizure [Recovering/Resolving]
  - Intentional overdose [Unknown]
  - Hypotension [Recovering/Resolving]
  - Circulatory collapse [Recovering/Resolving]
  - Ventricular tachycardia [Recovering/Resolving]
  - Toxicity to various agents [Recovering/Resolving]
  - Pulseless electrical activity [Recovering/Resolving]
